FAERS Safety Report 25611455 (Version 1)
Quarter: 2025Q3

REPORT INFORMATION
  Report Type: Spontaneous
  Country: GB (occurrence: GB)
  Receive Date: 20250728
  Receipt Date: 20250728
  Transmission Date: 20251021
  Serious: Yes (Other)
  Sender: SANDOZ
  Company Number: None

PATIENT
  Age: 60 Year
  Sex: Female
  Weight: 68 kg

DRUGS (3)
  1. EZETIMIBE [Suspect]
     Active Substance: EZETIMIBE
     Indication: Product used for unknown indication
     Dosage: UNK, QD, ONE TO BE TAKEN EACH DAY
     Route: 065
  2. BEMPEDOIC ACID [Concomitant]
     Active Substance: BEMPEDOIC ACID
     Indication: Product used for unknown indication
     Dosage: UNK, QD, ONE TO BE TAKEN ONCE DAILY, STRENGTH: 180 MG
     Route: 065
     Dates: start: 20250724
  3. EZETIMIBE [Concomitant]
     Active Substance: EZETIMIBE
     Indication: Acute myocardial infarction
     Dosage: UNK, QD, ONE TO BE TAKEN EACH DAY TO LOWER CHOLESTEROL
     Route: 065
     Dates: start: 20250701

REACTIONS (1)
  - Muscle spasms [Recovered/Resolved]
